FAERS Safety Report 10789797 (Version 1)
Quarter: 2015Q1

REPORT INFORMATION
  Report Type: Spontaneous
  Country: US (occurrence: US)
  Receive Date: 20150212
  Receipt Date: 20150212
  Transmission Date: 20150721
  Serious: Yes (Hospitalization, Other)
  Sender: FDA-Public Use
  Company Number: US-GLAXOSMITHKLINE-A1087495A

PATIENT

DRUGS (11)
  1. ADVAIR DISKUS [Suspect]
     Active Substance: FLUTICASONE PROPIONATE\SALMETEROL XINAFOATE
     Indication: ASTHMA
     Dosage: 250/50 MCG
     Route: 055
  2. SPIRONOLACTONE. [Concomitant]
     Active Substance: SPIRONOLACTONE
  3. ADVAIR DISKUS [Suspect]
     Active Substance: FLUTICASONE PROPIONATE\SALMETEROL XINAFOATE
     Indication: CHRONIC OBSTRUCTIVE PULMONARY DISEASE
  4. SPIRIVA [Concomitant]
     Active Substance: TIOTROPIUM BROMIDE MONOHYDRATE
  5. ISOSORBIDE [Concomitant]
     Active Substance: ISOSORBIDE
  6. CARVEDILOL. [Concomitant]
     Active Substance: CARVEDILOL
  7. LASIX [Concomitant]
     Active Substance: FUROSEMIDE
  8. ALPRAZOLAM. [Concomitant]
     Active Substance: ALPRAZOLAM
  9. LIPITOR [Concomitant]
     Active Substance: ATORVASTATIN CALCIUM
  10. SINGULAIR [Concomitant]
     Active Substance: MONTELUKAST SODIUM
  11. ASPIRIN. [Concomitant]
     Active Substance: ASPIRIN

REACTIONS (1)
  - Pneumonia [Recovered/Resolved]
